FAERS Safety Report 8641825 (Version 2)
Quarter: 2014Q1

REPORT INFORMATION
  Report Type: Spontaneous
  Country: US (occurrence: None)
  Receive Date: 20120323
  Receipt Date: 20130305
  Transmission Date: 20141002
  Serious: Yes (Other)
  Sender: FDA-Public Use
  Company Number: 163-21880-11102203

PATIENT
  Age: 90 Year
  Sex: Female
  Weight: 47.17 kg

DRUGS (2)
  1. REVLIMID [Suspect]
     Indication: PLASMA CELL MYELOMA
     Dosage: 10 MG, 1 IN 1 D, PO ; 5 MG, 1 IN 1 D, PO
     Route: 048
     Dates: start: 20110706
  2. TRANSFUSION (BLOOD TRANSFUSION)AUXILLARY PRODUCS. [Concomitant]

REACTIONS (1)
  - Full blood count decreased [None]
